FAERS Safety Report 5389774-3 (Version None)
Quarter: 2007Q3

REPORT INFORMATION
  Report Type: 
  Country: None (occurrence: None)
  Receive Date: 20070717
  Receipt Date: 20070710
  Transmission Date: 20080115
  Serious: Yes (Hospitalization)
  Sender: FDA-Public Use
  Company Number: JP-MERCK-0707USA01575

PATIENT
  Age: 81 Year
  Sex: Female

DRUGS (4)
  1. FOSAMAX [Suspect]
     Indication: OSTEOPOROSIS
     Route: 048
     Dates: start: 20011001
  2. PREDNISOLONE [Concomitant]
     Route: 048
     Dates: start: 20070330
  3. SOLETON [Concomitant]
     Route: 048
     Dates: start: 20050701
  4. RIMATIL [Concomitant]
     Indication: MUSCULOSKELETAL PAIN
     Route: 048
     Dates: start: 20050701

REACTIONS (2)
  - ABSCESS JAW [None]
  - OSTEOMYELITIS [None]
